FAERS Safety Report 20008382 (Version 1)
Quarter: 2021Q4

REPORT INFORMATION
  Report Type: Spontaneous
  Country: US (occurrence: US)
  Receive Date: 20211028
  Receipt Date: 20211028
  Transmission Date: 20220303
  Serious: No
  Sender: FDA-Public Use
  Company Number: US-ELI_LILLY_AND_COMPANY-US202110011218

PATIENT
  Sex: Female

DRUGS (2)
  1. HUMALOG [Suspect]
     Active Substance: INSULIN LISPRO
     Indication: Type 1 diabetes mellitus
     Dosage: UNK UNK, PRN
     Route: 058
     Dates: start: 202109
  2. NOVOLOG [Concomitant]
     Active Substance: INSULIN ASPART
     Indication: Type 1 diabetes mellitus

REACTIONS (4)
  - Drug hypersensitivity [Unknown]
  - Blood glucose increased [Recovered/Resolved]
  - Blood glucose decreased [Recovered/Resolved]
  - Drug ineffective [Unknown]
